FAERS Safety Report 8936910 (Version 2)
Quarter: 2013Q1

REPORT INFORMATION
  Report Type: Report from Study
  Country: CA (occurrence: CA)
  Receive Date: 20121130
  Receipt Date: 20130206
  Transmission Date: 20140127
  Serious: Yes (Hospitalization)
  Sender: FDA-Public Use
  Company Number: CA-SHIRE-ALL1-2012-05870

PATIENT
  Age: 15 Year
  Sex: Male
  Weight: 30.5 kg

DRUGS (20)
  1. IDURSULFASE [Suspect]
     Indication: MUCOPOLYSACCHARIDOSIS II
     Dosage: 12 MG, 1X/WEEK
     Route: 041
     Dates: start: 20080813
  2. IDURSULFASE [Suspect]
     Dosage: 18 MG, 1X/WEEK
     Route: 041
  3. PREDNISONE [Concomitant]
     Indication: PREMEDICATION
     Dosage: 30 MG, 1X/WEEK (ADMINISTERED THE NIGHT BEFORE THE ELAPRASE INFUSION)
     Route: 048
     Dates: start: 20120304
  4. ATROVENT [Concomitant]
     Indication: NASAL CONGESTION
     Dosage: 0.03 SPRAY, OTHER (2-3 TIMES DAILY)
     Route: 045
     Dates: start: 20110611
  5. DIPHENHYDRAMINE [Concomitant]
     Indication: PREMEDICATION
     Dosage: 37.5 MG, AS REQ^D
     Route: 065
     Dates: start: 20081001
  6. PULMICORT [Concomitant]
     Indication: RESPIRATORY DISORDER
     Dosage: 1 MG, 2X/DAY:BID
     Route: 055
     Dates: start: 2008
  7. ACETAMINOPHEN [Concomitant]
     Indication: PREMEDICATION
     Dosage: 350 MG, AS REQ^D
     Route: 048
     Dates: start: 20080822
  8. ACETAMINOPHEN [Concomitant]
     Dosage: 350 MG, AS REQ^D
     Route: 065
     Dates: start: 20080911
  9. SALBUTAMOL [Concomitant]
     Indication: PREMEDICATION
     Dosage: 0.9 ML, AS REQ^D
     Route: 055
     Dates: start: 20080813
  10. SALBUTAMOL [Concomitant]
     Dosage: 1 DF (PUFF), AS REQ^D
     Route: 055
     Dates: start: 2005
  11. MELATONIN [Concomitant]
     Indication: SLEEP DISORDER
     Dosage: 2.0 MG, 1X/DAY:QD
     Route: 048
     Dates: start: 200803
  12. MELATONIN [Concomitant]
     Dosage: 6.0 MG, 1X/DAY:QD
     Route: 050
  13. TEGRETOL [Concomitant]
     Indication: NERVOUS SYSTEM DISORDER
     Dosage: 140 MG, 2X/DAY:BID
     Route: 048
     Dates: start: 20070514
  14. FLONASE [Concomitant]
     Indication: RESPIRATORY DISORDER
     Dosage: 50 ?G, 2X/DAY:BID
     Route: 055
     Dates: start: 2007
  15. ZANTAC [Concomitant]
     Indication: GASTROINTESTINAL DISORDER
     Dosage: 30 MG, 1X/DAY:QD
     Route: 048
     Dates: start: 2006
  16. METHYLPREDNISOLONE [Concomitant]
     Indication: PREMEDICATION
     Dosage: 40 MG, AS REQ^D
     Route: 042
     Dates: start: 20081126
  17. LACTULOSE [Concomitant]
     Indication: MEDICAL DIET
     Dosage: 10 ML, 2X/DAY:BID
     Route: 050
  18. CLONAZEPAM [Concomitant]
     Indication: SLEEP DISORDER
     Dosage: 2 MG, 1X/DAY:QD
     Route: 050
  19. CHOLECALCIFEROL [Concomitant]
     Indication: VITAMIN SUPPLEMENTATION
     Dosage: 400 MG, 1X/DAY:QD
     Route: 050
  20. GABAPENTIN [Concomitant]
     Indication: PAIN
     Dosage: 300 MG, 1X/DAY:QD
     Route: 050

REACTIONS (3)
  - Pharyngeal oedema [Recovering/Resolving]
  - Stridor [Recovering/Resolving]
  - Respiratory distress [Recovering/Resolving]
